FAERS Safety Report 23890457 (Version 1)
Quarter: 2024Q2

REPORT INFORMATION
  Report Type: Spontaneous
  Country: US (occurrence: None)
  Receive Date: 20240523
  Receipt Date: 20240523
  Transmission Date: 20240716
  Serious: Yes (unspecified)
  Sender: FDA-Public Use
  Company Number: None

PATIENT
  Age: 27 Year
  Sex: Female
  Weight: 68.85 kg

DRUGS (5)
  1. DUPIXENT [Suspect]
     Active Substance: DUPILUMAB
     Indication: Dermatitis atopic
     Dosage: FREQUENCY : EVERY OTHER WEEK;?
     Route: 058
     Dates: start: 20240424
  2. BUPROPION [Concomitant]
     Active Substance: BUPROPION
  3. tacrolimus (PROTOPIC) 0.1 % ointment [Concomitant]
  4. CLARITIN [Concomitant]
     Active Substance: LORATADINE
  5. Benadryl prn [Concomitant]

REACTIONS (1)
  - Arthralgia [None]

NARRATIVE: CASE EVENT DATE: 20240523
